FAERS Safety Report 23732444 (Version 1)
Quarter: 2024Q2

REPORT INFORMATION
  Report Type: Spontaneous
  Country: US (occurrence: US)
  Receive Date: 20240411
  Receipt Date: 20240411
  Transmission Date: 20240716
  Serious: No
  Sender: FDA-Public Use
  Company Number: US-009507513-2404USA005749

PATIENT

DRUGS (1)
  1. KEYTRUDA [Suspect]
     Active Substance: PEMBROLIZUMAB
     Indication: Non-small cell lung cancer metastatic
     Dosage: MORE THAN 35 CYCLES; 200 MG EVERY 3 WEEKS OR 400 MG EVERY 6 WEEKS

REACTIONS (2)
  - Toxicity to various agents [Unknown]
  - Product use issue [Unknown]
